FAERS Safety Report 6252400-5 (Version None)
Quarter: 2009Q3

REPORT INFORMATION
  Report Type: 
  Country: None (occurrence: None)
  Receive Date: 20090701
  Receipt Date: 20090618
  Transmission Date: 20100115
  Serious: Yes (Hospitalization)
  Sender: FDA-Public Use
  Company Number: FR-ELI_LILLY_AND_COMPANY-FR200905005784

PATIENT
  Sex: Male
  Weight: 75 kg

DRUGS (7)
  1. GEMCITABINE HCL [Suspect]
     Indication: NON-SMALL CELL LUNG CANCER
     Dosage: 1250 MG/M2, UNKNOWN
     Route: 042
     Dates: start: 20090428
  2. CISPLATIN [Suspect]
     Indication: NON-SMALL CELL LUNG CANCER
     Dosage: 80 MG/M2, UNKNOWN
     Route: 042
     Dates: start: 20090428
  3. CALCIPARINE [Concomitant]
     Dosage: 2 MG, UNKNOWN
     Route: 042
  4. HEPARIN [Concomitant]
     Route: 042
     Dates: start: 20090426
  5. ONDANSETRON HCL [Concomitant]
     Route: 042
     Dates: start: 20090428
  6. EMEND [Concomitant]
     Route: 048
     Dates: start: 20090428
  7. ACTIVASE [Concomitant]
     Route: 042
     Dates: start: 20090519

REACTIONS (4)
  - ASTHENIA [None]
  - FIBRINOLYSIS [None]
  - IMPLANT SITE THROMBOSIS [None]
  - OEDEMA PERIPHERAL [None]
